FAERS Safety Report 8989131 (Version 1)
Quarter: 2012Q4

REPORT INFORMATION
  Report Type: 
  Country: US (occurrence: US)
  Receive Date: 20121227
  Receipt Date: 20121227
  Transmission Date: 20130627
  Serious: No
  Sender: FDA-Public Use
  Company Number: US-ASTRAZENECA-2012SE93379

PATIENT
  Age: 46 Year
  Sex: Female
  Weight: 69.9 kg

DRUGS (9)
  1. SEROQUEL XR [Suspect]
     Indication: BIPOLAR DISORDER
     Route: 048
  2. SEROQUEL XR [Suspect]
     Indication: BIPOLAR DISORDER
     Route: 048
  3. SEROQUEL XR [Suspect]
     Indication: BIPOLAR DISORDER
     Route: 048
  4. OMEPRAZOLE [Suspect]
     Route: 048
  5. VIIBRYD [Concomitant]
     Indication: ANXIETY
  6. VIIBRYD [Concomitant]
     Indication: DEPRESSION
  7. ALPRAZOLAM [Concomitant]
     Indication: ANXIETY
  8. IBUPROFEN [Concomitant]
     Indication: BACK PAIN
  9. CYCLOBENZAPRINE [Concomitant]
     Indication: MUSCLE SPASMS

REACTIONS (6)
  - Abdominal discomfort [Unknown]
  - Myalgia [Unknown]
  - Back pain [Unknown]
  - Blood cholesterol increased [Unknown]
  - Weight increased [Unknown]
  - Off label use [Unknown]
